FAERS Safety Report 8599928-0 (Version None)
Quarter: 2012Q3

REPORT INFORMATION
  Report Type: 
  Country: None (occurrence: None)
  Receive Date: 20120816
  Receipt Date: 20101012
  Transmission Date: 20120928
  Serious: Yes (Hospitalization)
  Sender: FDA-Public Use
  Company Number: CA-AMGEN LTD.-KDC441697

PATIENT
  Age: 80 Year
  Sex: Male

DRUGS (6)
  1. SIMVASTATIN [Concomitant]
     Dosage: 40 MG, QD
     Route: 048
     Dates: start: 20090501
  2. GLYBURIDE [Concomitant]
     Dosage: 5 MG, QD
     Route: 048
     Dates: start: 20090101
  3. BLOOD CELLS, PACKED HUMAN [Concomitant]
     Dosage: UNK UNK, UNK
     Dates: start: 20100604, end: 20100901
  4. SPIRONOLACTONE [Concomitant]
     Dosage: 25 MG, QD
     Route: 048
     Dates: start: 19970101
  5. BISOPROLOL FUMARATE [Concomitant]
     Dosage: 5 MG, QD
     Route: 048
     Dates: start: 19970101
  6. ROMIPLOSTIM [Suspect]
     Indication: MYELODYSPLASTIC SYNDROME
     Dosage: UNK UNK, QWK
     Route: 058
     Dates: start: 20100520

REACTIONS (1)
  - PNEUMONIA [None]
